FAERS Safety Report 16941912 (Version 2)
Quarter: 2019Q4

REPORT INFORMATION
  Report Type: Report from Study
  Country: US (occurrence: US)
  Receive Date: 20191021
  Receipt Date: 20191108
  Transmission Date: 20200122
  Serious: Yes (Hospitalization)
  Sender: FDA-Public Use
  Company Number: US-EISAI MEDICAL RESEARCH-EC-2019-063893

PATIENT
  Age: 51 Year
  Sex: Male
  Weight: 132 kg

DRUGS (11)
  1. TYLENOL [Concomitant]
     Active Substance: ACETAMINOPHEN
  2. INSULIN [Concomitant]
     Active Substance: INSULIN NOS
  3. CARDURA [Concomitant]
     Active Substance: DOXAZOSIN MESYLATE
  4. EVEROLIMUS. [Concomitant]
     Active Substance: EVEROLIMUS
  5. LENVIMA [Suspect]
     Active Substance: LENVATINIB
     Route: 048
     Dates: start: 2019, end: 2019
  6. ELIQUIS [Concomitant]
     Active Substance: APIXABAN
  7. COREG [Concomitant]
     Active Substance: CARVEDILOL
  8. ATORVASTATIN CALCIUM. [Concomitant]
     Active Substance: ATORVASTATIN CALCIUM
  9. LENVIMA [Suspect]
     Active Substance: LENVATINIB
     Indication: RENAL CANCER
     Route: 048
     Dates: start: 20190930, end: 201910
  10. MELATONIN [Concomitant]
     Active Substance: MELATONIN
  11. MULTIPLE VITAMINS [Concomitant]
     Active Substance: VITAMINS

REACTIONS (1)
  - Blood pressure increased [Unknown]

NARRATIVE: CASE EVENT DATE: 201910
